FAERS Safety Report 7800154-0 (Version None)
Quarter: 2011Q4

REPORT INFORMATION
  Report Type: 
  Country: None (occurrence: None)
  Receive Date: 20111006
  Receipt Date: 20110930
  Transmission Date: 20120403
  Serious: Yes (Hospitalization, Disabling)
  Sender: FDA-Public Use
  Company Number: US-MERCK-1107USA01368

PATIENT
  Age: 49 Year
  Sex: Female

DRUGS (7)
  1. CALCIUM (UNSPECIFIED) [Concomitant]
     Route: 065
     Dates: start: 20050101
  2. VITAMIN D (UNSPECIFIED) [Concomitant]
     Route: 065
     Dates: start: 20050101
  3. PROTONIX [Concomitant]
     Route: 065
     Dates: start: 20050101
  4. FOSAMAX [Suspect]
     Indication: OSTEOPENIA
     Route: 048
     Dates: start: 20000401, end: 20090601
  5. FOSAMAX [Suspect]
     Route: 048
     Dates: start: 20000401, end: 20090601
  6. FOSAMAX [Suspect]
     Indication: OSTEOPOROSIS
     Route: 048
     Dates: start: 20000401, end: 20090601
  7. FOSAMAX [Suspect]
     Route: 048
     Dates: start: 20000401, end: 20090601

REACTIONS (8)
  - FRACTURE NONUNION [None]
  - LOW TURNOVER OSTEOPATHY [None]
  - BLOOD CHOLESTEROL INCREASED [None]
  - FEMUR FRACTURE [None]
  - FALL [None]
  - DEVICE FAILURE [None]
  - HAND FRACTURE [None]
  - FOOT FRACTURE [None]
